FAERS Safety Report 16895397 (Version 1)
Quarter: 2019Q4

REPORT INFORMATION
  Report Type: Spontaneous
  Country: US (occurrence: US)
  Receive Date: 20191008
  Receipt Date: 20191008
  Transmission Date: 20200122
  Serious: Yes (Other)
  Sender: FDA-Public Use
  Company Number: US-GLAXOSMITHKLINE-US2018GSK240001

PATIENT
  Age: 57 Year
  Sex: Female

DRUGS (1)
  1. BELIMUMAB [Suspect]
     Active Substance: BELIMUMAB
     Indication: SYSTEMIC LUPUS ERYTHEMATOSUS
     Dosage: UNK
     Dates: start: 20120612, end: 20160428

REACTIONS (2)
  - Vulval cancer stage 0 [Recovered/Resolved]
  - Anogenital dysplasia [Recovered/Resolved]

NARRATIVE: CASE EVENT DATE: 20170615
